FAERS Safety Report 20466565 (Version 1)
Quarter: 2022Q1

REPORT INFORMATION
  Report Type: Spontaneous
  Country: CA (occurrence: CA)
  Receive Date: 20220213
  Receipt Date: 20220213
  Transmission Date: 20220423
  Serious: Yes (Other)
  Sender: FDA-Public Use
  Company Number: CA-BAXTER-2022BAX002980

PATIENT
  Age: 28 Year
  Sex: Male

DRUGS (5)
  1. CYCLOPHOSPHAMIDE [Suspect]
     Active Substance: CYCLOPHOSPHAMIDE
     Indication: Paraganglion neoplasm
     Dosage: DOSAGE FORM: NOT SPECIFIED
     Route: 065
  2. DACARBAZINE [Suspect]
     Active Substance: DACARBAZINE
     Indication: Paraganglion neoplasm
     Dosage: DOSAGE FORM: NOT REPORTED
     Route: 065
  3. LUTETIUM LU-177 [Suspect]
     Active Substance: LUTETIUM LU-177
     Indication: Paraganglion neoplasm
     Dosage: DOSAGE FORM: NOT REPORTED
     Route: 065
  4. SUNITINIB MALATE [Suspect]
     Active Substance: SUNITINIB MALATE
     Indication: Paraganglion neoplasm
     Dosage: DOSAGE FORM: NOT REPORTED
     Route: 065
  5. VINCRISTINE SULFATE [Suspect]
     Active Substance: VINCRISTINE SULFATE
     Indication: Paraganglion neoplasm
     Dosage: DOSAGE FORM: NOT SPECIFIED
     Route: 065

REACTIONS (4)
  - Off label use [Unknown]
  - Product use in unapproved indication [Unknown]
  - Toxicity to various agents [Unknown]
  - Neoplasm progression [Unknown]
